FAERS Safety Report 7158944-6 (Version None)
Quarter: 2010Q4

REPORT INFORMATION
  Report Type: 
  Country: None (occurrence: None)
  Receive Date: 20101214
  Receipt Date: 20101203
  Transmission Date: 20110411
  Serious: Yes (Other)
  Sender: FDA-Public Use
  Company Number: US-SANOFI-AVENTIS-2010SA069764

PATIENT
  Age: 75 Year
  Sex: Male
  Weight: 104.33 kg

DRUGS (18)
  1. LANTUS [Suspect]
     Dosage: DOSE:100 UNIT(S)
     Route: 058
     Dates: start: 20101101
  2. LANTUS [Suspect]
     Indication: TYPE 2 DIABETES MELLITUS
  3. ARICEPT [Concomitant]
  4. ACTOS [Concomitant]
  5. GLIPIZIDE [Concomitant]
  6. BENICAR [Concomitant]
  7. DIGOXIN [Concomitant]
  8. DILTIAZEM [Concomitant]
  9. LEVOTHYROXINE [Concomitant]
  10. SIMVASTATIN [Concomitant]
  11. OXYBUTYNIN [Concomitant]
  12. PAROXETINE HCL [Concomitant]
  13. WARFARIN SODIUM [Concomitant]
     Dosage: AS PRECRIBED
  14. ACETYLSALICYLIC ACID [Concomitant]
     Dosage: MONDAY , WEDNESDAY AND FRIDAY
  15. VENLAFAXINE [Concomitant]
  16. FISH OIL [Concomitant]
  17. MULTI-VITAMINS [Concomitant]
  18. NITROGLYCERIN [Concomitant]

REACTIONS (1)
  - PROSTATIC OPERATION [None]
